FAERS Safety Report 11439176 (Version 1)
Quarter: 2015Q3

REPORT INFORMATION
  Report Type: Spontaneous
  Country: US (occurrence: None)
  Receive Date: 20150831
  Receipt Date: 20150831
  Transmission Date: 20151125
  Serious: No
  Sender: FDA-Public Use
  Company Number: None

PATIENT
  Sex: Female

DRUGS (3)
  1. FORTEO [Concomitant]
     Active Substance: TERIPARATIDE
  2. FORTEO [Suspect]
     Active Substance: TERIPARATIDE
     Indication: OSTEOPOROSIS
     Route: 058
     Dates: start: 20140520
  3. MAXAIR [Concomitant]
     Active Substance: PIRBUTEROL ACETATE

REACTIONS (1)
  - Musculoskeletal stiffness [None]
